FAERS Safety Report 23396656 (Version 2)
Quarter: 2024Q2

REPORT INFORMATION
  Report Type: Report from Study
  Country: GB (occurrence: GB)
  Receive Date: 20240112
  Receipt Date: 20240616
  Transmission Date: 20240715
  Serious: Yes (Hospitalization)
  Sender: FDA-Public Use
  Company Number: GB-JNJFOC-20240102924

PATIENT
  Age: 8 Decade
  Sex: Male

DRUGS (25)
  1. TREMFYA [Suspect]
     Active Substance: GUSELKUMAB
     Indication: Psoriasis
     Route: 065
     Dates: start: 20190829
  2. TREMFYA [Suspect]
     Active Substance: GUSELKUMAB
  3. TREMFYA [Suspect]
     Active Substance: GUSELKUMAB
  4. ASPIRIN [Concomitant]
     Active Substance: ASPIRIN
     Dates: start: 19930601
  5. NITROGLYCERIN [Concomitant]
     Active Substance: NITROGLYCERIN
     Dates: start: 19930601
  6. ISOSORBIDE MONONITRATE [Concomitant]
     Active Substance: ISOSORBIDE MONONITRATE
     Dates: start: 19960601
  7. BISOPROLOL [Concomitant]
     Active Substance: BISOPROLOL\BISOPROLOL FUMARATE
     Dates: start: 19960601
  8. ATORVASTATIN [Concomitant]
     Active Substance: ATORVASTATIN
     Dates: start: 20000101
  9. ALLOPURINOL [Concomitant]
     Active Substance: ALLOPURINOL
     Dates: start: 20130101
  10. FUROSEMIDE [Concomitant]
     Active Substance: FUROSEMIDE
     Dates: start: 20160101
  11. CANDESARTAN [Concomitant]
     Active Substance: CANDESARTAN
     Dates: start: 20180101
  12. CLOPIDOGREL [Concomitant]
     Active Substance: CLOPIDOGREL BISULFATE
     Dates: start: 20180501
  13. ACETAMINOPHEN [Concomitant]
     Active Substance: ACETAMINOPHEN
     Dates: start: 20200107
  14. COVID-19 VACCINE [Concomitant]
     Dates: start: 20210207
  15. COVID-19 VACCINE [Concomitant]
     Dates: start: 20210423
  16. COVID-19 VACCINE [Concomitant]
     Dates: start: 20211129
  17. COVID-19 VACCINE [Concomitant]
     Dates: start: 20220520
  18. COVID-19 VACCINE [Concomitant]
     Dates: start: 20221025
  19. COVID-19 VACCINE [Concomitant]
     Dates: start: 20231012
  20. ZEROVEEN [Concomitant]
     Dates: start: 20220627
  21. SODIUM HYALURONATE [Concomitant]
     Active Substance: HYALURONATE SODIUM
     Route: 047
  22. FINASTERIDE [Concomitant]
     Active Substance: FINASTERIDE
     Dates: start: 20220906
  23. DAPAGLIFLOZIN [Concomitant]
     Active Substance: DAPAGLIFLOZIN
     Dates: start: 20220906
  24. LANSOPRAZOLE [Concomitant]
     Active Substance: LANSOPRAZOLE
     Dates: start: 20220906
  25. EPLERENONE [Concomitant]
     Active Substance: EPLERENONE
     Dates: start: 20220906

REACTIONS (5)
  - Pneumonia [Recovered/Resolved with Sequelae]
  - Fall [Unknown]
  - Neck pain [Unknown]
  - Hypotension [Unknown]
  - Dizziness [Unknown]

NARRATIVE: CASE EVENT DATE: 20231001
